FAERS Safety Report 9681100 (Version 1)
Quarter: 2013Q4

REPORT INFORMATION
  Report Type: Spontaneous
  Country: LB (occurrence: None)
  Receive Date: 20131108
  Receipt Date: 20131108
  Transmission Date: 20140711
  Serious: Yes (Life-Threatening, Other)
  Sender: FDA-Public Use
  Company Number: None

PATIENT
  Age: 27 Year
  Sex: Female
  Weight: 53 kg

DRUGS (1)
  1. MIRENA [Suspect]

REACTIONS (4)
  - Vaginal haemorrhage [None]
  - Pregnancy with contraceptive device [None]
  - Abortion induced [None]
  - Maternal exposure during pregnancy [None]
